FAERS Safety Report 18770772 (Version 1)
Quarter: 2021Q1

REPORT INFORMATION
  Report Type: Spontaneous
  Country: SI (occurrence: SI)
  Receive Date: 20210121
  Receipt Date: 20210121
  Transmission Date: 20210419
  Serious: Yes (Hospitalization, Other)
  Sender: FDA-Public Use
  Company Number: SI-GLAXOSMITHKLINE-SI2021GSK005374

PATIENT
  Sex: Female

DRUGS (3)
  1. SALBUTAMOL [Suspect]
     Active Substance: ALBUTEROL
     Dosage: 400 UG, Z (4 HOURS FOR ANOTHER 12 HOURS)
     Route: 055
  2. BETAMETHASONE. [Suspect]
     Active Substance: BETAMETHASONE
     Indication: PREMATURE LABOUR
     Dosage: UNK
     Route: 064
  3. SALBUTAMOL [Suspect]
     Active Substance: ALBUTEROL
     Indication: HYPERKALAEMIA
     Dosage: 400 UG, Z (REPEATED EVERY 2 HOURS)
     Route: 055

REACTIONS (24)
  - Neonatal respiratory distress [Recovered/Resolved]
  - Hyperkalaemia [Recovered/Resolved]
  - Hypomagnesaemia [Unknown]
  - Electrocardiogram T wave peaked [Recovered/Resolved]
  - Heart rate increased [Unknown]
  - Blood pressure increased [Unknown]
  - Mean arterial pressure increased [Unknown]
  - Use of accessory respiratory muscles [Recovered/Resolved]
  - Polyuria [Unknown]
  - Hyperphosphataemia [Unknown]
  - Hypopnoea [Recovered/Resolved]
  - Neonatal respiratory distress syndrome [Recovered/Resolved]
  - Intraventricular haemorrhage neonatal [Unknown]
  - Hyperglycaemia [Recovered/Resolved]
  - Tachycardia foetal [Recovered/Resolved]
  - Neonatal pneumothorax [Recovered/Resolved]
  - Haemorrhage neonatal [Recovered/Resolved]
  - Neonatal tachypnoea [Recovered/Resolved]
  - Bronchopulmonary dysplasia [Unknown]
  - Foetal exposure during pregnancy [Unknown]
  - Neonatal hypocalcaemia [Unknown]
  - Blood potassium increased [Recovered/Resolved]
  - Anaemia neonatal [Unknown]
  - Premature baby [Unknown]
